FAERS Safety Report 17583514 (Version 2)
Quarter: 2020Q4

REPORT INFORMATION
  Report Type: Spontaneous
  Country: US (occurrence: US)
  Receive Date: 20200326
  Receipt Date: 20201112
  Transmission Date: 20210113
  Serious: Yes (Other)
  Sender: FDA-Public Use
  Company Number: US-TEVA-2020-US-1208694

PATIENT
  Age: 60 Year
  Sex: Female

DRUGS (8)
  1. PARAPLATIN 10 MG/ML VIAL [Concomitant]
  2. DEXAMETHASONE 4 MG TABLET [Concomitant]
     Active Substance: DEXAMETHASONE
  3. ALIMTA 500 MG VIAL [Concomitant]
  4. AUSTEDO [Suspect]
     Active Substance: DEUTETRABENAZINE
     Indication: HUNTINGTON^S DISEASE
     Route: 048
     Dates: start: 201906
  5. KEYTRUDA 100 MG/4ML VIAL [Concomitant]
     Dosage: 100 MG/4ML VIAL
  6. EYE STREAM [Concomitant]
     Active Substance: WATER
  7. AUSTEDO [Suspect]
     Active Substance: DEUTETRABENAZINE
     Dosage: 18 MILLIGRAM DAILY;
     Route: 048
  8. AUSTEDO [Suspect]
     Active Substance: DEUTETRABENAZINE
     Dosage: 12 MILLIGRAM DAILY;
     Route: 048

REACTIONS (10)
  - Dry eye [Recovering/Resolving]
  - Thyroidectomy [Unknown]
  - Stress [Unknown]
  - Insomnia [Recovering/Resolving]
  - Lung neoplasm malignant [Unknown]
  - Hair disorder [Unknown]
  - Dyspnoea [Unknown]
  - Cough [Unknown]
  - Intentional product use issue [Unknown]
  - Hyperventilation [Unknown]

NARRATIVE: CASE EVENT DATE: 201912
